FAERS Safety Report 6883564-8 (Version None)
Quarter: 2010Q3

REPORT INFORMATION
  Report Type: 
  Country: None (occurrence: None)
  Receive Date: 20100729
  Receipt Date: 20100720
  Transmission Date: 20110219
  Serious: Yes (Other)
  Sender: FDA-Public Use
  Company Number: CA-JNJFOC-20100706981

PATIENT
  Sex: Female
  Weight: 74 kg

DRUGS (4)
  1. REMICADE [Suspect]
     Indication: CROHN'S DISEASE
     Route: 042
     Dates: start: 20081001, end: 20100501
  2. BENADRYL [Concomitant]
  3. ACETAMINOPHEN [Concomitant]
     Route: 048
  4. SOLU-CORTEF [Concomitant]
     Route: 042

REACTIONS (2)
  - BACK PAIN [None]
  - PULMONARY MASS [None]
